FAERS Safety Report 6099747-3 (Version None)
Quarter: 2009Q1

REPORT INFORMATION
  Report Type: 
  Country: None (occurrence: None)
  Receive Date: 20090303
  Receipt Date: 20090218
  Transmission Date: 20090719
  Serious: Yes (Life-Threatening, Hospitalization)
  Sender: FDA-Public Use
  Company Number: US-ROCHE-609421

PATIENT
  Sex: Male
  Weight: 128.4 kg

DRUGS (7)
  1. PEGASYS [Suspect]
     Indication: HEPATITIS C
     Route: 058
     Dates: start: 20081123, end: 20081221
  2. COPEGUS [Suspect]
     Indication: HEPATITIS C
     Route: 048
     Dates: start: 20081123, end: 20081221
  3. MILK THISTLE [Concomitant]
     Indication: HEPATITIS C
     Dosage: FORM: PILL
     Route: 048
  4. OMEGA III FATTY ACID [Concomitant]
     Dosage: FORM: PILL DRUG: OMEGA 3 FISH OIL
     Route: 048
  5. OXYCODONE [Concomitant]
     Indication: PAIN
     Dosage: EVERY SIX HOURS, AS NEEDED
     Route: 048
  6. XANAX [Concomitant]
     Indication: ANXIETY
     Route: 048
  7. SYNTHROID [Concomitant]
     Indication: HYPOTHYROIDISM
     Route: 048
     Dates: start: 20081222

REACTIONS (1)
  - RHABDOMYOLYSIS [None]
